FAERS Safety Report 9049692 (Version 2)
Quarter: 2013Q1

REPORT INFORMATION
  Report Type: Spontaneous
  Country: US (occurrence: US)
  Receive Date: 20130205
  Receipt Date: 20130213
  Transmission Date: 20140127
  Serious: No
  Sender: FDA-Public Use
  Company Number: US-009507513-1302USA001660

PATIENT
  Sex: Female

DRUGS (1)
  1. CLARITIN-D 24 HOUR [Suspect]
     Indication: SINUS DISORDER
     Dosage: UNK, UNKNOWN
     Route: 048

REACTIONS (1)
  - Expired drug administered [Unknown]
